FAERS Safety Report 6895279-0 (Version None)
Quarter: 2010Q3

REPORT INFORMATION
  Report Type: 
  Country: None (occurrence: None)
  Receive Date: 20100802
  Receipt Date: 20100721
  Transmission Date: 20110219
  Serious: Yes (Life-Threatening, Hospitalization)
  Sender: FDA-Public Use
  Company Number: CH-MERCK-1007USA03627

PATIENT
  Age: 74 Year
  Sex: Female

DRUGS (11)
  1. MODURETIC 5-50 [Suspect]
     Indication: ESSENTIAL HYPERTENSION
     Route: 048
     Dates: end: 20100627
  2. ACETAMINOPHEN [Suspect]
     Indication: PAIN
     Route: 048
  3. NOVALGIN [Suspect]
     Indication: PAIN
     Route: 048
     Dates: start: 20100506, end: 20100627
  4. IRFEN [Suspect]
     Indication: PAIN
     Route: 048
     Dates: end: 20100627
  5. LASIX [Suspect]
     Route: 048
     Dates: end: 20100627
  6. LYRICA [Suspect]
     Indication: PAIN
     Route: 048
     Dates: end: 20100627
  7. SIRDALUD [Suspect]
     Indication: PAIN
     Route: 048
     Dates: end: 20100627
  8. OMEPRAZOLE [Suspect]
     Route: 048
     Dates: end: 20100627
  9. TEGRETOL [Concomitant]
     Route: 065
  10. MADOPAR [Concomitant]
     Route: 065
  11. SIMCORA [Concomitant]
     Route: 065

REACTIONS (5)
  - AGRANULOCYTOSIS [None]
  - CLOSTRIDIUM BACTERAEMIA [None]
  - HERPES SIMPLEX [None]
  - LEUKOPENIA [None]
  - PYREXIA [None]
